FAERS Safety Report 8911515 (Version 1)
Quarter: 2012Q4

REPORT INFORMATION
  Report Type: 
  Country: US (occurrence: US)
  Receive Date: 20121115
  Receipt Date: 20121115
  Transmission Date: 20130627
  Serious: No
  Sender: FDA-Public Use
  Company Number: US-PFIZER INC-2012283286

PATIENT
  Age: 80 Year
  Sex: Male
  Weight: 75.74 kg

DRUGS (4)
  1. VIAGRA [Suspect]
     Indication: ERECTILE DYSFUNCTION
     Dosage: 50 mg, as needed
     Route: 048
     Dates: start: 201208
  2. FLOMAX [Concomitant]
     Dosage: UNK
  3. ASPIRIN [Concomitant]
     Dosage: UNK
  4. OMEPRAZOLE [Concomitant]
     Indication: INDIGESTION
     Dosage: UNK

REACTIONS (1)
  - Drug effect incomplete [Unknown]
